FAERS Safety Report 10421015 (Version 1)
Quarter: 2014Q3

REPORT INFORMATION
  Report Type: Spontaneous
  Country: IT (occurrence: None)
  Receive Date: 20140828
  Receipt Date: 20140828
  Transmission Date: 20150326
  Serious: Yes (Other)
  Sender: FDA-Public Use
  Company Number: AUR-APL-2014-09072

PATIENT
  Age: 45 Year
  Sex: Male

DRUGS (2)
  1. LEVOFLOXACIN 500 MG (LEVOFLOXACIN) [Suspect]
     Active Substance: LEVOFLOXACIN
     Indication: PRODUCT USED FOR UNKNOWN INDICATION
     Dosage: TOTAL
     Route: 048
     Dates: start: 20140818, end: 20140818
  2. AMOXICILLIN /CLAVULANIC ACID (AMOXICILLIN TRIHYDRATE, CLAVULANATE POTASSIUM) [Concomitant]

REACTIONS (6)
  - Dyspnoea [None]
  - Pyrexia [None]
  - Eye pruritus [None]
  - Oedema peripheral [None]
  - Arthritis [None]
  - Lip oedema [None]

NARRATIVE: CASE EVENT DATE: 20140818
